FAERS Safety Report 4774165-6 (Version None)
Quarter: 2005Q3

REPORT INFORMATION
  Report Type: 
  Country: None (occurrence: None)
  Receive Date: 20050914
  Receipt Date: 20041207
  Transmission Date: 20060218
  Serious: Yes (Hospitalization)
  Sender: FDA-Public Use
  Company Number: 163-20785-04120167

PATIENT
  Age: 67 Year
  Sex: Female
  Weight: 89 kg

DRUGS (4)
  1. THALOMID [Suspect]
     Indication: NON-SMALL CELL LUNG CANCER
     Dosage: DAY 1 200 MG; TITRATE AT 100 MG/WEEK UP TO 1000 MG, DAILY, ORAL
     Route: 048
     Dates: start: 20040813, end: 20041202
  2. CARBOPLATIN [Suspect]
     Indication: NON-SMALL CELL LUNG CANCER
     Dosage: AUC = 6, OVER 15-30 MIN.ON DAY1 EVERY 21 DAYS X 2, INTRAVENOUS
     Route: 042
     Dates: start: 20040813, end: 20041029
  3. PACLITAXEL [Suspect]
     Indication: NON-SMALL CELL LUNG CANCER
     Dosage: 225 MG/M2, OVER 3 HOURS ON DAY 1 EVERY 21 DAYS X 2, INTRAVENOUS
     Route: 042
     Dates: start: 20040813, end: 20041029
  4. RADIATION THERAPY [Suspect]
     Indication: NON-SMALL CELL LUNG CANCER
     Dosage: 60 GY AT 2.0 GY PER FRACTION OVER 6 WEEKS BETWEEN DAYS 43-50

REACTIONS (2)
  - DYSPNOEA [None]
  - PULMONARY EMBOLISM [None]
